FAERS Safety Report 9441485 (Version 2)
Quarter: 2013Q3

REPORT INFORMATION
  Report Type: Spontaneous
  Country: US (occurrence: US)
  Receive Date: 20130805
  Receipt Date: 20130906
  Transmission Date: 20140515
  Serious: Yes (Hospitalization)
  Sender: FDA-Public Use
  Company Number: US-GILEAD-2013-0078521

PATIENT
  Sex: Female

DRUGS (2)
  1. LETAIRIS [Suspect]
     Indication: PULMONARY HYPERTENSION
     Dosage: 5 MG, UNK
     Route: 048
     Dates: start: 20130226
  2. LETAIRIS [Suspect]
     Indication: SCLERODERMA

REACTIONS (4)
  - Pulmonary hypertension [Unknown]
  - Generalised oedema [Not Recovered/Not Resolved]
  - Right ventricular failure [Unknown]
  - Anaemia [Unknown]
